FAERS Safety Report 14695796 (Version 1)
Quarter: 2018Q1

REPORT INFORMATION
  Report Type: Spontaneous
  Country: US (occurrence: US)
  Receive Date: 20180328
  Receipt Date: 20180328
  Transmission Date: 20180509
  Serious: Yes (Disabling, Other)
  Sender: FDA-Public Use
  Company Number: None

PATIENT
  Age: 65 Year
  Sex: Female
  Weight: 40.05 kg

DRUGS (1)
  1. PROLIA [Suspect]
     Active Substance: DENOSUMAB
     Indication: OSTEOPOROSIS
     Dosage: ?          OTHER FREQUENCY:6 MONTHS;?
     Route: 008
     Dates: start: 20180101, end: 20180328

REACTIONS (5)
  - Insomnia [None]
  - Urinary tract infection [None]
  - Burning sensation [None]
  - Anxiety [None]
  - Pain in extremity [None]

NARRATIVE: CASE EVENT DATE: 20180328
